FAERS Safety Report 25550348 (Version 1)
Quarter: 2025Q3

REPORT INFORMATION
  Report Type: Spontaneous
  Country: CN (occurrence: CN)
  Receive Date: 20250714
  Receipt Date: 20250714
  Transmission Date: 20251020
  Serious: Yes (Other)
  Sender: PFIZER
  Company Number: CN-PFIZER INC-PV202500082982

PATIENT
  Age: 53 Year
  Sex: Female
  Weight: 58 kg

DRUGS (2)
  1. CYTARABINE [Suspect]
     Active Substance: CYTARABINE
     Indication: Acute myeloid leukaemia
     Dosage: 3 G, 2X/DAY (EVERY 12 HOURS)
     Route: 041
     Dates: start: 20250702
  2. DEXTROSE [Concomitant]
     Active Substance: DEXTROSE MONOHYDRATE
     Indication: Vehicle solution use
     Dosage: 500 ML, 2X/DAY (EVERY 12 HOURS)
     Route: 041
     Dates: start: 20250702

REACTIONS (3)
  - Pyrexia [Recovered/Resolved]
  - Conjunctival hyperaemia [Recovering/Resolving]
  - Cytarabine syndrome [Recovering/Resolving]

NARRATIVE: CASE EVENT DATE: 20250703
